FAERS Safety Report 4692710-6 (Version None)
Quarter: 2005Q2

REPORT INFORMATION
  Report Type: 
  Country: None (occurrence: None)
  Receive Date: 20050617
  Receipt Date: 20050309
  Transmission Date: 20051028
  Serious: Yes (Hospitalization, Disabling)
  Sender: FDA-Public Use
  Company Number: US-MERCK-0503USA02127

PATIENT
  Age: 43 Year
  Sex: Male
  Weight: 86 kg

DRUGS (9)
  1. VIOXX [Suspect]
     Indication: BACK PAIN
     Route: 048
     Dates: start: 20020101, end: 20041006
  2. VIOXX [Suspect]
     Route: 048
  3. HYZAAR [Concomitant]
     Route: 065
     Dates: start: 20020501, end: 20030101
  4. VICODIN [Concomitant]
     Route: 065
     Dates: start: 20020101
  5. HYDROCODONE BITARTRATE + ACETAMINOPHEN [Concomitant]
     Route: 065
     Dates: start: 20020101
  6. MOTRIN [Concomitant]
     Route: 065
     Dates: start: 20020501, end: 20020701
  7. TYLENOL [Concomitant]
     Route: 065
     Dates: start: 20020506, end: 20020516
  8. CRESTOR [Concomitant]
     Route: 065
     Dates: start: 20020101
  9. ASPIRIN [Concomitant]
     Route: 065

REACTIONS (27)
  - ABNORMAL SENSATION IN EYE [None]
  - AMAUROSIS [None]
  - ASTHENIA [None]
  - BLINDNESS TRANSIENT [None]
  - BLOOD CHOLESTEROL INCREASED [None]
  - CARPAL TUNNEL SYNDROME [None]
  - CEREBROVASCULAR ACCIDENT [None]
  - CERVICOBRACHIAL SYNDROME [None]
  - EMBOLIC CEREBRAL INFARCTION [None]
  - FACIAL PALSY [None]
  - HEADACHE [None]
  - HERNIA [None]
  - HYPERCHOLESTEROLAEMIA [None]
  - HYPERTENSION [None]
  - HYPOAESTHESIA [None]
  - LABORATORY TEST ABNORMAL [None]
  - MASS [None]
  - NECK PAIN [None]
  - OSTEOARTHRITIS [None]
  - PAIN IN EXTREMITY [None]
  - PARAESTHESIA [None]
  - PARTIAL SEIZURES [None]
  - SPEECH DISORDER [None]
  - SPINAL OSTEOARTHRITIS [None]
  - TUNNEL VISION [None]
  - VISION BLURRED [None]
  - VISUAL DISTURBANCE [None]
